FAERS Safety Report 8521949 (Version 5)
Quarter: 2013Q2

REPORT INFORMATION
  Report Type: Spontaneous
  Country: US (occurrence: US)
  Receive Date: 20120419
  Receipt Date: 20130529
  Transmission Date: 20140414
  Serious: Yes (Hospitalization, Other)
  Sender: FDA-Public Use
  Company Number: US-ASTRAZENECA-2012SE23332

PATIENT
  Age: 60 Year
  Sex: Male
  Weight: 120.7 kg

DRUGS (17)
  1. SYMBICORT PMDI [Suspect]
     Indication: CHRONIC OBSTRUCTIVE PULMONARY DISEASE
     Dosage: 160/4.5 MCG, TWO PUFFS, TWICE DAILY
     Route: 055
     Dates: start: 2010
  2. SYMBICORT PMDI [Suspect]
     Indication: CHRONIC OBSTRUCTIVE PULMONARY DISEASE
     Dosage: 160/4.5 MCG, TWO PUFFS, TWICE DAILY
     Route: 055
     Dates: start: 2010
  3. SYMBICORT PMDI [Suspect]
     Indication: ASTHMA
     Dosage: 160/4.5 MCG, TWO PUFFS, TWICE DAILY
     Route: 055
     Dates: start: 2010
  4. NEXIUM [Suspect]
     Indication: GASTROOESOPHAGEAL REFLUX DISEASE
     Route: 048
  5. SEROQUEL [Suspect]
     Indication: BIPOLAR DISORDER
     Dosage: TWO TIMES A DAY
     Route: 048
  6. SEROQUEL [Suspect]
     Indication: BIPOLAR DISORDER
     Dosage: 50MG, 1TABLET IN THE MORNING AND 1TABLET IN THE AFTERNOON AND 300 MG BEFORE BEDTIME
     Route: 048
  7. SEROQUEL [Suspect]
     Indication: BIPOLAR DISORDER
     Route: 048
  8. SEROQUEL [Suspect]
     Indication: BIPOLAR DISORDER
     Route: 048
  9. SEROQUEL [Suspect]
     Indication: BIPOLAR DISORDER
     Route: 048
  10. SEROQUEL [Suspect]
     Indication: BIPOLAR DISORDER
     Route: 048
  11. COUMADIN [Suspect]
     Route: 065
  12. ATENOLOL [Concomitant]
  13. LASIX [Concomitant]
  14. POTASSIUM [Concomitant]
  15. KLONOPIN [Concomitant]
  16. SEIZURE MEDICATION [Concomitant]
  17. PREVACID [Concomitant]

REACTIONS (8)
  - Cerebral haemorrhage [Unknown]
  - Transient ischaemic attack [Unknown]
  - Convulsion [Unknown]
  - Cerebrovascular accident [Unknown]
  - Spinal compression fracture [Unknown]
  - Influenza [Unknown]
  - Off label use [Unknown]
  - Intentional drug misuse [Unknown]
